FAERS Safety Report 4385937-4 (Version None)
Quarter: 2004Q2

REPORT INFORMATION
  Report Type: 
  Country: None (occurrence: None)
  Receive Date: 20040628
  Receipt Date: 20040621
  Transmission Date: 20050107
  Serious: Yes (Other)
  Sender: FDA-Public Use
  Company Number: BR-BRISTOL-MYERS SQUIBB COMPANY-12622171

PATIENT
  Age: 59 Year
  Sex: Female
  Weight: 73 kg

DRUGS (2)
  1. TAXOL [Suspect]
     Route: 042
     Dates: start: 20030530, end: 20030530
  2. PARAPLATIN [Concomitant]

REACTIONS (1)
  - ANOREXIA [None]
